FAERS Safety Report 6620994-3 (Version None)
Quarter: 2010Q1

REPORT INFORMATION
  Report Type: 
  Country: None (occurrence: None)
  Receive Date: 20100309
  Receipt Date: 20100225
  Transmission Date: 20100710
  Serious: Yes (Hospitalization, Other)
  Sender: FDA-Public Use
  Company Number: PHEH2009US10895

PATIENT
  Sex: Female
  Weight: 58.957 kg

DRUGS (5)
  1. GLEEVEC [Suspect]
     Indication: NEOPLASM MALIGNANT
     Dosage: 400 MG, QD
     Dates: start: 20090601
  2. GLEEVEC [Suspect]
     Dosage: 800 MG, QD
     Route: 048
  3. GLEEVEC [Suspect]
     Dosage: 400 MG, QD
     Route: 048
  4. GLEEVEC [Suspect]
     Dosage: 400 MG, BID
     Route: 048
  5. PANTOPRAZOLE [Concomitant]
     Dosage: 40 MG, UNK

REACTIONS (7)
  - ERYTHEMA [None]
  - FLUID RETENTION [None]
  - GASTROINTESTINAL STROMAL TUMOUR [None]
  - HEADACHE [None]
  - SURGERY [None]
  - SWELLING [None]
  - WHITE BLOOD CELL COUNT DECREASED [None]
